FAERS Safety Report 15488374 (Version 1)
Quarter: 2018Q4

REPORT INFORMATION
  Report Type: Report from Study
  Country: BR (occurrence: BR)
  Receive Date: 20181011
  Receipt Date: 20181011
  Transmission Date: 20190205
  Serious: Yes (Other)
  Sender: FDA-Public Use
  Company Number: BR-JNJFOC-20181004460

PATIENT
  Age: 59 Year
  Sex: Female

DRUGS (5)
  1. REMICADE [Suspect]
     Active Substance: INFLIXIMAB
     Indication: RHEUMATOID ARTHRITIS
     Route: 042
     Dates: start: 2015
  2. DEPURA [Concomitant]
     Active Substance: CHOLECALCIFEROL
     Route: 065
  3. LEFLUNOMIDE. [Concomitant]
     Active Substance: LEFLUNOMIDE
     Route: 065
  4. PREDNISOLONE. [Concomitant]
     Active Substance: PREDNISOLONE
     Route: 065
  5. RETINOL [Concomitant]
     Active Substance: RETINOL
     Route: 065

REACTIONS (3)
  - Systemic lupus erythematosus [Unknown]
  - Gastritis [Unknown]
  - Hypertension [Unknown]

NARRATIVE: CASE EVENT DATE: 201807
